FAERS Safety Report 4421012-8 (Version None)
Quarter: 2004Q3

REPORT INFORMATION
  Report Type: 
  Country: None (occurrence: None)
  Receive Date: 20040809
  Receipt Date: 20040702
  Transmission Date: 20050211
  Serious: Yes (Other)
  Sender: FDA-Public Use
  Company Number: AU-GLAXOSMITHKLINE-B0338072A

PATIENT
  Sex: Male

DRUGS (1)
  1. AUGMENTIN '400' [Suspect]
     Dosage: 1TAB PER DAY
     Dates: start: 20040626

REACTIONS (6)
  - DISTURBANCE IN ATTENTION [None]
  - FLUID IMBALANCE [None]
  - GRAND MAL CONVULSION [None]
  - HEART RATE DECREASED [None]
  - HEART RATE IRREGULAR [None]
  - HYPOTENSION [None]
